FAERS Safety Report 8905553 (Version 1)
Quarter: 2012Q4

REPORT INFORMATION
  Report Type: 
  Country: KP (occurrence: KP)
  Receive Date: 20121113
  Receipt Date: 20121113
  Transmission Date: 20130627
  Serious: Yes (Other)
  Sender: FDA-Public Use
  Company Number: KP-WATSON-2012-19426

PATIENT
  Age: 66 Year
  Sex: Female

DRUGS (5)
  1. PREDNISONE (UNKNOWN) [Suspect]
     Indication: EXTRANODAL MARGINAL ZONE B-CELL LYMPHOMA (MALT TYPE)
     Dosage: 60 mg/mm days 1-5
     Route: 048
  2. CYCLOPHOSPHAMIDE [Suspect]
     Indication: EXTRANODAL MARGINAL ZONE B-CELL LYMPHOMA (MALT TYPE)
     Dosage: 750 mg/mm day 1
     Route: 042
  3. ADRIAMYCIN                         /00330901/ [Suspect]
     Indication: EXTRANODAL MARGINAL ZONE B-CELL LYMPHOMA (MALT TYPE)
     Dosage: 50 mg/mm day 1
     Route: 042
  4. VINCRISTINE [Suspect]
     Indication: EXTRANODAL MARGINAL ZONE B-CELL LYMPHOMA (MALT TYPE)
     Dosage: 1.4 mg/mm bolus day 1
     Route: 042
  5. RITUXIMAB [Suspect]
     Indication: EXTRANODAL MARGINAL ZONE B-CELL LYMPHOMA (MALT TYPE)
     Dosage: 375 mg/mm
     Route: 042

REACTIONS (2)
  - Neutropenia [Recovered/Resolved]
  - Alanine aminotransferase increased [Recovered/Resolved]
